FAERS Safety Report 17188852 (Version 1)
Quarter: 2019Q4

REPORT INFORMATION
  Report Type: Other
  Country: US (occurrence: US)
  Receive Date: 20191222
  Receipt Date: 20191222
  Transmission Date: 20200122
  Serious: No
  Sender: FDA-Public Use
  Company Number: US-ACORDA-ACO_162727_2019

PATIENT
  Sex: Male

DRUGS (3)
  1. INBRIJA [Suspect]
     Active Substance: LEVODOPA
     Indication: PARKINSON^S DISEASE
     Dosage: 84 MILLIGRAM, PRN, UP TO FIVE TIMES PER DAY
  2. CARBIDOPA AND LEVODOPA [Concomitant]
     Active Substance: CARBIDOPA\LEVODOPA
     Dosage: 50-200 MG 1 TABLET (EXTENDED RELEASE) BEFORE BED
     Route: 065
  3. CARBIDOPA AND LEVODOPA [Concomitant]
     Active Substance: CARBIDOPA\LEVODOPA
     Indication: PRODUCT USED FOR UNKNOWN INDICATION
     Dosage: 25-100 MG 2 TABLETS 6 TIMES PER DAY
     Route: 065

REACTIONS (3)
  - Therapeutic product effect variable [Unknown]
  - Wrong technique in device usage process [Unknown]
  - Wrong technique in product usage process [Unknown]
